FAERS Safety Report 8333152-1 (Version None)
Quarter: 2012Q2

REPORT INFORMATION
  Report Type: 
  Country: None (occurrence: None)
  Receive Date: 20120503
  Receipt Date: 20120427
  Transmission Date: 20120825
  Serious: Yes (Hospitalization)
  Sender: FDA-Public Use
  Company Number: JP-PFIZER INC-2012104303

PATIENT
  Age: 51 Year
  Sex: Male

DRUGS (2)
  1. SULFASALAZINE [Suspect]
     Indication: COLITIS ULCERATIVE
     Dosage: UNK
  2. MERCAPTOPURINE [Concomitant]
     Dosage: UNK

REACTIONS (1)
  - OCULOMUCOCUTANEOUS SYNDROME [None]
